FAERS Safety Report 7002412-9 (Version None)
Quarter: 2010Q3

REPORT INFORMATION
  Report Type: 
  Country: None (occurrence: None)
  Receive Date: 20100920
  Receipt Date: 20100427
  Transmission Date: 20110219
  Serious: No
  Sender: FDA-Public Use
  Company Number: US-ASTRAZENECA-2010SE07342

PATIENT
  Age: 51 Year
  Sex: Male
  Weight: 102.1 kg

DRUGS (1)
  1. SEROQUEL XR [Suspect]
     Indication: SLEEP DISORDER
     Route: 048
     Dates: start: 20100101

REACTIONS (4)
  - DRUG DOSE OMISSION [None]
  - DRY MOUTH [None]
  - NASAL CONGESTION [None]
  - SOMNOLENCE [None]
